FAERS Safety Report 18215719 (Version 2)
Quarter: 2020Q3

REPORT INFORMATION
  Report Type: Report from Study
  Country: None (occurrence: CA)
  Receive Date: 20200901
  Receipt Date: 20200909
  Transmission Date: 20201103
  Serious: Yes (Other)
  Sender: FDA-Public Use
  Company Number: CA-ABBVIE-20K-028-3543368-00

PATIENT
  Age: 76 Year
  Sex: Male

DRUGS (2)
  1. HUMIRA [Suspect]
     Active Substance: ADALIMUMAB
     Route: 058
     Dates: start: 20200902
  2. HUMIRA [Suspect]
     Active Substance: ADALIMUMAB
     Indication: CROHN^S DISEASE
     Route: 058
     Dates: start: 20200729, end: 20200812

REACTIONS (4)
  - Skin lesion [Recovering/Resolving]
  - Peripheral swelling [Recovering/Resolving]
  - Erythema [Recovering/Resolving]
  - Ingrowing nail [Recovering/Resolving]

NARRATIVE: CASE EVENT DATE: 2020
